FAERS Safety Report 21252826 (Version 3)
Quarter: 2022Q4

REPORT INFORMATION
  Report Type: Report from Study
  Country: CA (occurrence: CA)
  Receive Date: 20220825
  Receipt Date: 20221229
  Transmission Date: 20230112
  Serious: Yes (Other)
  Sender: FDA-Public Use
  Company Number: CA-NOVARTISPH-NVSC2022CA189469

PATIENT
  Age: 28 Year
  Sex: Male

DRUGS (1)
  1. ELTROMBOPAG OLAMINE [Suspect]
     Active Substance: ELTROMBOPAG OLAMINE
     Indication: Immune thrombocytopenia
     Dosage: 50 MG, QD
     Route: 048
     Dates: start: 20220817

REACTIONS (7)
  - Platelet count decreased [Unknown]
  - Throat irritation [Unknown]
  - Headache [Unknown]
  - Arthralgia [Unknown]
  - Labelled drug-food interaction issue [Unknown]
  - Nausea [Unknown]
  - Alopecia [Unknown]
